FAERS Safety Report 19031409 (Version 3)
Quarter: 2021Q3

REPORT INFORMATION
  Report Type: Report from Study
  Country: US (occurrence: US)
  Receive Date: 20210319
  Receipt Date: 20210907
  Transmission Date: 20211014
  Serious: No
  Sender: FDA-Public Use
  Company Number: NVSC2021US057574

PATIENT
  Sex: Male

DRUGS (1)
  1. KESIMPTA [Suspect]
     Active Substance: OFATUMUMAB
     Indication: RELAPSING MULTIPLE SCLEROSIS
     Dosage: UNK
     Route: 065
     Dates: start: 20210310

REACTIONS (5)
  - Asthenia [Unknown]
  - Influenza like illness [Unknown]
  - Pyrexia [Unknown]
  - Back pain [Unknown]
  - Pain [Unknown]
